FAERS Safety Report 8806739 (Version 1)
Quarter: 2012Q4

REPORT INFORMATION
  Report Type: Spontaneous
  Country: None (occurrence: None)
  Receive Date: 20120919
  Receipt Date: 20120919
  Transmission Date: 20130627
  Serious: Yes (Other)
  Sender: FDA-Public Use
  Company Number: AUR-APL-2012-03655

PATIENT
  Age: 57 Year
  Sex: Male
  Weight: 91.4 kg

DRUGS (6)
  1. RIBAVIRIN [Suspect]
     Indication: HEPATITIS C
     Route: 048
     Dates: start: 20120716, end: 20120816
  2. PEGASYS [Suspect]
     Route: 058
     Dates: start: 20120716, end: 20120816
  3. PEGASYS [Suspect]
     Route: 058
     Dates: start: 20120716, end: 20120816
  4. PEGASYS [Suspect]
     Route: 058
     Dates: start: 20120716, end: 20120816
  5. PEGASYS [Suspect]
     Route: 058
     Dates: start: 20120716, end: 20120816
  6. TELAPREVIR [Suspect]

REACTIONS (2)
  - Platelet count decreased [None]
  - Blood albumin decreased [None]
